FAERS Safety Report 7494433-7 (Version None)
Quarter: 2011Q2

REPORT INFORMATION
  Report Type: 
  Country: None (occurrence: None)
  Receive Date: 20110520
  Receipt Date: 20110512
  Transmission Date: 20111010
  Serious: Yes (Hospitalization)
  Sender: FDA-Public Use
  Company Number: US-ROCHE-777175

PATIENT
  Sex: Male
  Weight: 88 kg

DRUGS (6)
  1. TELAPREVIR [Suspect]
     Route: 048
     Dates: start: 20110511
  2. LEXAPRO [Concomitant]
     Indication: DEPRESSION
     Route: 048
  3. OXYCONTIN [Concomitant]
  4. RIBAVIRIN [Suspect]
     Route: 048
     Dates: start: 20110511
  5. PREGABALIN [Concomitant]
     Indication: PAIN
  6. PEGINTERFERON ALFA-2A [Suspect]
     Route: 065
     Dates: start: 20110511

REACTIONS (2)
  - MYOCLONUS [None]
  - MENTAL STATUS CHANGES [None]
